FAERS Safety Report 23748158 (Version 1)
Quarter: 2024Q2

REPORT INFORMATION
  Report Type: Spontaneous
  Country: US (occurrence: US)
  Receive Date: 20240416
  Receipt Date: 20240416
  Transmission Date: 20240717
  Serious: Yes (Other)
  Sender: FDA-Public Use
  Company Number: US-INSUD PHARMA-2404US03036

PATIENT

DRUGS (2)
  1. TESTOSTERONE [Suspect]
     Active Substance: TESTOSTERONE
     Indication: Muscle building therapy
     Dosage: SELF-INJECTION, UNCLEAR DOSE
     Route: 030
  2. STANOZOLOL [Suspect]
     Active Substance: STANOZOLOL
     Indication: Muscle building therapy
     Dosage: 3 PILLS, UNCLEAR DOSE
     Route: 048

REACTIONS (7)
  - Myocarditis [Recovered/Resolved]
  - Chest pain [Recovered/Resolved]
  - Abdominal pain upper [Recovered/Resolved]
  - Dyspnoea [Recovered/Resolved]
  - Tachycardia [Recovered/Resolved]
  - Hypoxia [Recovered/Resolved]
  - Performance enhancing product use [Unknown]
